FAERS Safety Report 14756084 (Version 3)
Quarter: 2019Q3

REPORT INFORMATION
  Report Type: Spontaneous
  Country: NL (occurrence: NL)
  Receive Date: 20180413
  Receipt Date: 20190912
  Transmission Date: 20191004
  Serious: Yes (Life-Threatening, Hospitalization)
  Sender: FDA-Public Use
  Company Number: NL-AUROBINDO-AUR-APL-2018-019336

PATIENT
  Age: 60 Year
  Sex: Female

DRUGS (13)
  1. PARACETAMOL [Concomitant]
     Active Substance: ACETAMINOPHEN
     Indication: PRODUCT USED FOR UNKNOWN INDICATION
     Dosage: ZONODIG 4X PER DAG 1 TABLET
     Route: 065
  2. RISEDRONIC ACID [Concomitant]
     Active Substance: RISEDRONIC ACID
     Indication: PRODUCT USED FOR UNKNOWN INDICATION
     Dosage: 1X PER WEEK 1 TABLET
     Route: 065
  3. FOLIUMZUUR [Concomitant]
     Active Substance: FOLIC ACID
     Indication: PRODUCT USED FOR UNKNOWN INDICATION
     Dosage: 1X PER WEEK 1 TABLET
     Route: 065
  4. METHOTREXATE. [Concomitant]
     Active Substance: METHOTREXATE
     Indication: PRODUCT USED FOR UNKNOWN INDICATION
     Dosage: 1X PER WEEK 5 TABLETTEN
     Route: 065
  5. SIMVASTATINE [Concomitant]
     Active Substance: SIMVASTATIN
     Indication: PRODUCT USED FOR UNKNOWN INDICATION
     Dosage: ^S AVONDS 1 TABLET
     Route: 065
  6. AMLODIPINE [Concomitant]
     Active Substance: AMLODIPINE BESYLATE
     Indication: PRODUCT USED FOR UNKNOWN INDICATION
     Dosage: 1X PER DAG 1 TABLET
     Route: 065
  7. TRAMAGETIC [Concomitant]
     Active Substance: TRAMADOL
     Dosage: 1X PER DAG 1 TABLET
  8. AMITRIPTYLINE [Concomitant]
     Active Substance: AMITRIPTYLINE
     Indication: PRODUCT USED FOR UNKNOWN INDICATION
     Dosage: VOOR DE NACHT 1 TABLET
     Route: 065
  9. TRAMAGETIC [Concomitant]
     Active Substance: TRAMADOL
     Dosage: 1X PER DAG 1 TABLET
  10. MELOXICAM TABLETS 15MG [Suspect]
     Active Substance: MELOXICAM
     Indication: RHEUMATOID ARTHRITIS
     Dosage: 1X PER DAG 1 TABLET
     Route: 065
     Dates: start: 20180209, end: 20180320
  11. CALCIUM/VITAMINE D3 SANDOZ [Concomitant]
     Indication: PRODUCT USED FOR UNKNOWN INDICATION
     Dosage: ^S AVONDS 1 TABLET
     Route: 065
  12. PANTOPRAZOL [Concomitant]
     Active Substance: PANTOPRAZOLE SODIUM
     Indication: PRODUCT USED FOR UNKNOWN INDICATION
     Dosage: 1X PER DAG 1 TABLET
     Route: 065
  13. PREDNISOLONE. [Concomitant]
     Active Substance: PREDNISOLONE
     Indication: PRODUCT USED FOR UNKNOWN INDICATION
     Dosage: 1X PER DAG 1 TABLET
     Route: 065

REACTIONS (3)
  - Chest discomfort [Recovered/Resolved]
  - Hypotension [Recovered/Resolved]
  - Heart rate decreased [Recovered/Resolved]

NARRATIVE: CASE EVENT DATE: 201803
